FAERS Safety Report 6342136-4 (Version None)
Quarter: 2009Q3

REPORT INFORMATION
  Report Type: 
  Country: None (occurrence: None)
  Receive Date: 20090903
  Receipt Date: 20090903
  Transmission Date: 20100115
  Serious: No
  Sender: FDA-Public Use
  Company Number: None

PATIENT
  Age: 75 Year
  Sex: Female
  Weight: 68.9467 kg

DRUGS (1)
  1. CATAPRES-TTS-1 [Suspect]
     Indication: HYPERTENSION
     Dosage: .1  1 PATCH PER WEEK
     Dates: start: 20090301, end: 20090801

REACTIONS (11)
  - APPLICATION SITE NODULE [None]
  - APPLICATION SITE VESICLES [None]
  - DRY MOUTH [None]
  - EYE SWELLING [None]
  - HYPOAESTHESIA [None]
  - MICTURITION DISORDER [None]
  - NASAL DRYNESS [None]
  - PHARYNGEAL OEDEMA [None]
  - PRURITUS [None]
  - SWELLING FACE [None]
  - VISION BLURRED [None]
